FAERS Safety Report 22044785 (Version 1)
Quarter: 2023Q1

REPORT INFORMATION
  Report Type: Spontaneous
  Country: US (occurrence: US)
  Receive Date: 20230228
  Receipt Date: 20230228
  Transmission Date: 20230418
  Serious: Yes (Other)
  Sender: FDA-Public Use
  Company Number: US-drreddys-SPO/USA/23/0161371

PATIENT
  Age: 15 Year

DRUGS (3)
  1. ACCUTANE [Suspect]
     Active Substance: ISOTRETINOIN
     Indication: Product used for unknown indication
     Dosage: RMA ISSUE DATE: 03 OCTOBER 2022 01:25:22 PM, 30 DECEMBER 2022 01:34:37 PM
  2. ACCUTANE [Suspect]
     Active Substance: ISOTRETINOIN
     Dosage: RMA ISSUE DATE: 03 FEBRUARY 2023 04:46:49 PM
  3. ACCUTANE [Suspect]
     Active Substance: ISOTRETINOIN
     Dosage: RMA ISSUE DATE: 08 NOVEMBER 2022 12:45:38 PM, 06 DECEMBER 2022 05:31:50 PM

REACTIONS (2)
  - Mood altered [Unknown]
  - Anger [Unknown]
